FAERS Safety Report 8800111 (Version 3)
Quarter: 2013Q1

REPORT INFORMATION
  Report Type: Report from Study
  Country: IT (occurrence: IT)
  Receive Date: 20120921
  Receipt Date: 20130308
  Transmission Date: 20140127
  Serious: Yes (Hospitalization)
  Sender: FDA-Public Use
  Company Number: IT-BRISTOL-MYERS SQUIBB COMPANY-16977365

PATIENT
  Age: 57 Year
  Sex: Male

DRUGS (11)
  1. ERBITUX [Suspect]
     Indication: COLORECTAL CANCER METASTATIC
     Route: 042
     Dates: start: 20120514, end: 20120625
  2. DEXAMETHASONE [Concomitant]
  3. CHLORPHENIRAMINE [Concomitant]
  4. OXALIPLATIN [Concomitant]
     Indication: COLORECTAL CANCER METASTATIC
  5. FLUOROURACIL [Concomitant]
     Indication: COLORECTAL CANCER METASTATIC
  6. FOLINIC ACID [Concomitant]
     Indication: COLORECTAL CANCER METASTATIC
  7. AZITHROMYCIN [Concomitant]
     Route: 048
     Dates: start: 20120601
  8. MYCOSTATIN [Concomitant]
     Route: 048
     Dates: start: 20120601
  9. MS CONTIN [Concomitant]
     Route: 048
     Dates: start: 20120629, end: 20120730
  10. ROCEFIN [Concomitant]
     Route: 030
     Dates: start: 20120709, end: 20120730
  11. METRONIDAZOLE [Concomitant]
     Dates: start: 20120709, end: 20120730

REACTIONS (1)
  - Diverticulitis [Recovered/Resolved]
